FAERS Safety Report 16949778 (Version 2)
Quarter: 2019Q4

REPORT INFORMATION
  Report Type: Report from Study
  Country: EG (occurrence: EG)
  Receive Date: 20191023
  Receipt Date: 20191105
  Transmission Date: 20200122
  Serious: No
  Sender: FDA-Public Use
  Company Number: EG-EMD SERONO-9099327

PATIENT
  Age: 26 Year
  Sex: Female

DRUGS (3)
  1. REBIF [Suspect]
     Active Substance: INTERFERON BETA-1A
     Dosage: BACK TO FULL DOSES.
     Route: 058
     Dates: start: 20190604
  2. REBIF [Suspect]
     Active Substance: INTERFERON BETA-1A
     Dosage: DECREASED REBIF DOSE AT ONCE OR TWICE WEEKLY
     Route: 058
     Dates: start: 20190506, end: 20190603
  3. REBIF [Suspect]
     Active Substance: INTERFERON BETA-1A
     Indication: MULTIPLE SCLEROSIS
     Route: 058
     Dates: start: 20170101

REACTIONS (6)
  - Fatigue [Not Recovered/Not Resolved]
  - Intentional product misuse [Unknown]
  - Injection site pain [Not Recovered/Not Resolved]
  - Influenza like illness [Not Recovered/Not Resolved]
  - Intentional dose omission [Not Recovered/Not Resolved]
  - Needle fatigue [Unknown]

NARRATIVE: CASE EVENT DATE: 20170101
